FAERS Safety Report 4976250-2 (Version None)
Quarter: 2006Q2

REPORT INFORMATION
  Report Type: 
  Country: None (occurrence: None)
  Receive Date: 20060412
  Receipt Date: 20060403
  Transmission Date: 20061013
  Serious: Yes (Death)
  Sender: FDA-Public Use
  Company Number: 2006-00636

PATIENT
  Sex: Female
  Weight: 45 kg

DRUGS (1)
  1. VELCADE [Suspect]
     Indication: B-CELL LYMPHOMA
     Dosage: 2.00 MG, INTRAVENOUS
     Route: 042
     Dates: start: 20060220, end: 20060228

REACTIONS (2)
  - B-CELL LYMPHOMA [None]
  - MALIGNANT NEOPLASM PROGRESSION [None]
